FAERS Safety Report 13012558 (Version 1)
Quarter: 2016Q4

REPORT INFORMATION
  Report Type: Spontaneous
  Country: US (occurrence: US)
  Receive Date: 20161208
  Receipt Date: 20161208
  Transmission Date: 20170207
  Serious: Yes (Hospitalization)
  Sender: FDA-Public Use
  Company Number: None

PATIENT
  Age: 23 Year
  Sex: Male

DRUGS (6)
  1. TYLENOL TAB [Concomitant]
  2. LORATADINE TAB [Concomitant]
  3. CLARITIN [Concomitant]
     Active Substance: LORATADINE
  4. BENADRYL CAP [Concomitant]
  5. EXJADE [Suspect]
     Active Substance: DEFERASIROX
     Indication: SICKLE CELL ANAEMIA
     Dosage: 500MG TAB - 3 TABS (1500MG) ONCE DAILY PO
     Route: 048
     Dates: start: 20140616
  6. LEVETIRACETA TAB [Concomitant]

REACTIONS (1)
  - Drug dose omission [None]

NARRATIVE: CASE EVENT DATE: 201611
